FAERS Safety Report 12787408 (Version 1)
Quarter: 2016Q3

REPORT INFORMATION
  Report Type: Spontaneous
  Country: US (occurrence: US)
  Receive Date: 20160927
  Receipt Date: 20160927
  Transmission Date: 20161109
  Serious: Yes (Other)
  Sender: FDA-Public Use
  Company Number: None

PATIENT
  Age: 13 Year
  Sex: Male
  Weight: 44 kg

DRUGS (1)
  1. DINUTUXIMAB [Suspect]
     Active Substance: DINUTUXIMAB
     Route: 017

REACTIONS (4)
  - Methaemoglobinaemia [None]
  - Oxygen saturation decreased [None]
  - Pyrexia [None]
  - Urticaria [None]

NARRATIVE: CASE EVENT DATE: 20160824
